FAERS Safety Report 13652468 (Version 3)
Quarter: 2017Q4

REPORT INFORMATION
  Report Type: Report from Study
  Country: US (occurrence: US)
  Receive Date: 20170614
  Receipt Date: 20171128
  Transmission Date: 20180320
  Serious: Yes (Hospitalization)
  Sender: FDA-Public Use
  Company Number: US-ACTELION-A-NJ2017-155192

PATIENT
  Age: 75 Year
  Sex: Female
  Weight: 51 kg

DRUGS (20)
  1. GABAPENTIN. [Concomitant]
     Active Substance: GABAPENTIN
     Dosage: 100 MG, BID
     Dates: start: 20150516
  2. METOPROLOL. [Concomitant]
     Active Substance: METOPROLOL
     Dosage: 12.5 MG, Q12HRS
     Dates: start: 20150517
  3. ALBUTEROL. [Concomitant]
     Active Substance: ALBUTEROL
     Dosage: UNK
     Dates: start: 20150916
  4. FERROUS SULFATE. [Concomitant]
     Active Substance: FERROUS SULFATE
     Dosage: 325 MG, UNK
     Dates: start: 20170626
  5. SERTRALINE [Concomitant]
     Active Substance: SERTRALINE HYDROCHLORIDE
     Dosage: 150 MG, QPM
     Dates: start: 20170130
  6. OXYGEN. [Concomitant]
     Active Substance: OXYGEN
  7. TADALAFIL [Concomitant]
     Active Substance: TADALAFIL
     Dosage: 20 MG, QD
     Dates: start: 20141023
  8. PANTOPRAZOLE [Concomitant]
     Active Substance: PANTOPRAZOLE
     Dosage: 40 MG, UNK
     Dates: start: 20120201
  9. DICLOFENAC [Concomitant]
     Active Substance: DICLOFENAC
     Dosage: 75 MG, BID
     Dates: start: 20170615
  10. ADVAIR HFA [Concomitant]
     Active Substance: FLUTICASONE PROPIONATE\SALMETEROL XINAFOATE
     Dosage: UNK
     Dates: start: 20161012
  11. PRAVASTATIN. [Concomitant]
     Active Substance: PRAVASTATIN
     Dosage: 20 MG, QD
     Dates: start: 20120201
  12. BISCODYL [Concomitant]
     Active Substance: BISACODYL
     Dosage: UNK
     Dates: start: 20170814
  13. BIOTIN [Concomitant]
     Active Substance: BIOTIN
     Dosage: 5000 MCG, BID
     Dates: start: 20160923
  14. UPTRAVI [Suspect]
     Active Substance: SELEXIPAG
     Indication: PULMONARY ARTERIAL HYPERTENSION
     Dosage: 1200 MCG, BID
     Route: 048
     Dates: start: 20161221
  15. PREDNISONE. [Concomitant]
     Active Substance: PREDNISONE
     Dosage: 5 MG, QD
     Dates: start: 20130426
  16. SPIRIVA [Concomitant]
     Active Substance: TIOTROPIUM BROMIDE MONOHYDRATE
     Dosage: UNK
     Dates: start: 20150916
  17. CALCIUM CARBONATE. [Concomitant]
     Active Substance: CALCIUM CARBONATE
     Dosage: UNK
     Dates: start: 20111128
  18. ACETAMINOPHEN. [Concomitant]
     Active Substance: ACETAMINOPHEN
     Dosage: 500 MG, PRN
     Dates: start: 20170814
  19. BACLOFEN. [Concomitant]
     Active Substance: BACLOFEN
     Dosage: 10 MG, PRN
     Dates: start: 20150516
  20. TRAMADOL. [Concomitant]
     Active Substance: TRAMADOL
     Dosage: UNK
     Dates: start: 20130813

REACTIONS (28)
  - Hypotension [Unknown]
  - Atelectasis [Unknown]
  - Gastrooesophageal reflux disease [Unknown]
  - Lung infiltration [Unknown]
  - Pleural effusion [Recovered/Resolved with Sequelae]
  - Dry eye [Unknown]
  - Dyspnoea [Unknown]
  - Decreased activity [Unknown]
  - Decreased appetite [Unknown]
  - Pulmonary fibrosis [Unknown]
  - Breath sounds abnormal [Unknown]
  - Hip arthroplasty [Unknown]
  - Dyspnoea exertional [Unknown]
  - Chills [Unknown]
  - Depression [Unknown]
  - Oxygen consumption increased [Unknown]
  - Productive cough [Unknown]
  - Chest pain [Unknown]
  - Weight decreased [Unknown]
  - Chronic obstructive pulmonary disease [Unknown]
  - Fatigue [Unknown]
  - Night sweats [Unknown]
  - Pulmonary mass [Unknown]
  - Tachycardia [Unknown]
  - Hypomagnesaemia [Unknown]
  - Lung neoplasm malignant [Unknown]
  - Pneumonia [Unknown]
  - Poor quality sleep [Unknown]

NARRATIVE: CASE EVENT DATE: 20170525
